FAERS Safety Report 8085855-4 (Version None)
Quarter: 2012Q1

REPORT INFORMATION
  Report Type: 
  Country: None (occurrence: None)
  Receive Date: 20120128
  Receipt Date: 20110419
  Transmission Date: 20120608
  Serious: No
  Sender: FDA-Public Use
  Company Number: US-ABBOTT-11P-163-0720322-00

PATIENT
  Age: 50 Year
  Sex: Female

DRUGS (4)
  1. VALIUM [Concomitant]
     Indication: VERTIGO
  2. AMBIEN [Concomitant]
     Indication: INSOMNIA
     Dosage: AT BEDTIME
  3. GABAPENTIN [Concomitant]
     Indication: PAIN
  4. HUMIRA [Suspect]
     Indication: ANKYLOSING SPONDYLITIS
     Dates: start: 20110330

REACTIONS (3)
  - NASAL CONGESTION [None]
  - COUGH [None]
  - SINUS HEADACHE [None]
